FAERS Safety Report 12637892 (Version 1)
Quarter: 2016Q3

REPORT INFORMATION
  Report Type: Spontaneous
  Country: US (occurrence: US)
  Receive Date: 20160809
  Receipt Date: 20160809
  Transmission Date: 20161109
  Serious: No
  Sender: FDA-Public Use
  Company Number: US-SA-2016SA096003

PATIENT
  Age: 60 Year
  Sex: Female

DRUGS (8)
  1. CRESTOR [Concomitant]
     Active Substance: ROSUVASTATIN CALCIUM
  2. ZICAM NOS [Concomitant]
     Active Substance: ACETAMINOPHEN\CHLORPHENIRAMINE MALEATE\DEXTROMETHORPHAN HYDROBROMIDE\PHENYLEPHRINE HYDROCHLORIDE OR ACETAMINOPHEN\DEXTROMETHORPHAN HYDROBROMIDE\DOXYLAMINE SUCCINATE\PHENYLEPHRINE HYDROCHLORIDE
     Indication: NASOPHARYNGITIS
  3. FOLIC ACID. [Concomitant]
     Active Substance: FOLIC ACID
  4. FISH OIL [Concomitant]
     Active Substance: FISH OIL
  5. VITAMIN C [Concomitant]
     Active Substance: ASCORBIC ACID
  6. ALIROCUMAB PREFILLED PEN [Concomitant]
     Active Substance: ALIROCUMAB
     Indication: HYPERCHOLESTEROLAEMIA
  7. VITAMIN B6 [Concomitant]
     Active Substance: PYRIDOXINE HYDROCHLORIDE
  8. PRALUENT [Suspect]
     Active Substance: ALIROCUMAB
     Indication: HYPERCHOLESTEROLAEMIA
     Route: 058

REACTIONS (4)
  - Injection site rash [Recovered/Resolved]
  - Peripheral swelling [Unknown]
  - Fatigue [Unknown]
  - Injection site warmth [Recovered/Resolved]
